FAERS Safety Report 9840350 (Version 1)
Quarter: 2013Q4

REPORT INFORMATION
  Report Type: Spontaneous
  Country: US (occurrence: None)
  Receive Date: 20131211
  Receipt Date: 20131211
  Transmission Date: 20140711
  Serious: Yes (Other)
  Sender: FDA-Public Use
  Company Number: ALL1-2013-01125

PATIENT
  Age: 6 Year
  Sex: Male

DRUGS (3)
  1. VYVANSE [Suspect]
     Indication: ATTENTION DEFICIT/HYPERACTIVITY DISORDER
  2. DEPAKOTE(VALPROATE SEMISODIUM) [Concomitant]
  3. KAPVAY(CLONIDINE HYDROCHLORIDE) [Concomitant]

REACTIONS (6)
  - Psychotic behaviour [None]
  - Mania [None]
  - Eye movement disorder [None]
  - Tic [None]
  - Overdose [None]
  - Drug prescribing error [None]
